FAERS Safety Report 5375898-3 (Version None)
Quarter: 2007Q2

REPORT INFORMATION
  Report Type: 
  Country: None (occurrence: None)
  Receive Date: 20070627
  Receipt Date: 20070627
  Transmission Date: 20071010
  Serious: No
  Sender: FDA-Public Use
  Company Number: None

PATIENT
  Age: 55 Year
  Sex: Male

DRUGS (1)
  1. MIRTAZAPINE [Suspect]
     Indication: AFFECTIVE DISORDER
     Dosage: 7.5MG EVERY DAY PO
     Route: 048
     Dates: start: 20070608, end: 20070608

REACTIONS (1)
  - ANXIETY [None]
